FAERS Safety Report 9448334 (Version 1)
Quarter: 2013Q3

REPORT INFORMATION
  Report Type: Spontaneous
  Country: BR (occurrence: BR)
  Receive Date: 20130808
  Receipt Date: 20130808
  Transmission Date: 20140515
  Serious: Yes (Other)
  Sender: FDA-Public Use
  Company Number: BR-AMGEN-BRASP2013055295

PATIENT
  Age: 64 Year
  Sex: Male
  Weight: 68 kg

DRUGS (3)
  1. ENBREL [Suspect]
     Indication: ANKYLOSING SPONDYLITIS
     Dosage: 50 MG, 1X/WEEK
     Route: 058
     Dates: start: 2010, end: 201305
  2. OMEPRAZOLE [Concomitant]
     Dosage: 1 TABLET OF 20 MG, 1X/DAY
     Route: 048
  3. PURAN T4 [Concomitant]
     Dosage: 1 TABLET OF 50 MG, 1X/DAY
     Route: 048

REACTIONS (1)
  - Intervertebral disc protrusion [Recovered/Resolved]
